FAERS Safety Report 23526564 (Version 4)
Quarter: 2024Q1

REPORT INFORMATION
  Report Type: Spontaneous
  Country: US (occurrence: US)
  Receive Date: 20240215
  Receipt Date: 20240326
  Transmission Date: 20240409
  Serious: No
  Sender: FDA-Public Use
  Company Number: US-PFIZER INC-202400032914

PATIENT
  Age: 14 Year
  Sex: Male
  Weight: 49.9 kg

DRUGS (1)
  1. GENOTROPIN [Suspect]
     Active Substance: SOMATROPIN
     Indication: Growth hormone deficiency
     Dosage: NOT TAKEN THE FIRST DOSE OF GENOTROPIN YET

REACTIONS (1)
  - Liquid product physical issue [Not Recovered/Not Resolved]
